FAERS Safety Report 8071946-0 (Version None)
Quarter: 2012Q1

REPORT INFORMATION
  Report Type: 
  Country: None (occurrence: None)
  Receive Date: 20120119
  Receipt Date: 20120111
  Transmission Date: 20120608
  Serious: Yes (Life-Threatening, Other)
  Sender: FDA-Public Use
  Company Number: GER/UKI/12/0022627

PATIENT
  Age: 79 Year
  Sex: Female
  Weight: 65.5 kg

DRUGS (4)
  1. OLANZAPINE [Suspect]
     Indication: CONFUSIONAL STATE
     Dosage: 2.5 MG, 1 IN 1 D, ORAL
     Route: 048
     Dates: start: 20111213, end: 20111220
  2. EXEMESTANE [Concomitant]
  3. FUROSEMIDE [Concomitant]
  4. RAMIPRIL [Concomitant]

REACTIONS (3)
  - CONDITION AGGRAVATED [None]
  - ACUTE MYOCARDIAL INFARCTION [None]
  - CONFUSIONAL STATE [None]
